FAERS Safety Report 9663994 (Version 2)
Quarter: 2013Q4

REPORT INFORMATION
  Report Type: Report from Study
  Country: FR (occurrence: FR)
  Receive Date: 20131101
  Receipt Date: 20131114
  Transmission Date: 20140711
  Serious: Yes (Hospitalization)
  Sender: FDA-Public Use
  Company Number: FR-ROCHE-1292586

PATIENT
  Age: 70 Year
  Sex: Female

DRUGS (23)
  1. PERTUZUMAB [Suspect]
     Indication: BREAST CANCER METASTATIC
     Dosage: LOADING DOSE
     Route: 042
  2. PERTUZUMAB [Suspect]
     Dosage: MAINTENANCE DOSE
     Route: 042
  3. TRASTUZUMAB [Suspect]
     Indication: BREAST CANCER METASTATIC
     Dosage: LOADING DOSE
     Route: 042
  4. TRASTUZUMAB [Suspect]
     Dosage: MAINTENANCE DOSE
     Route: 042
  5. OROCAL [Concomitant]
     Route: 065
     Dates: start: 20131012, end: 20131025
  6. FENOFIBRATE [Concomitant]
  7. EXFORGE [Concomitant]
     Dosage: 5MG/160MG
     Route: 065
  8. XGEVA [Concomitant]
     Indication: METASTATIC PAIN
     Route: 065
     Dates: start: 20130620
  9. SOLUPRED (FRANCE) [Concomitant]
     Indication: NAUSEA
     Route: 065
     Dates: start: 20130815
  10. SOLUPRED (FRANCE) [Concomitant]
     Indication: VOMITING
     Route: 065
     Dates: start: 20130816
  11. ZOPHREN [Concomitant]
     Indication: NAUSEA
     Route: 065
     Dates: start: 20130816
  12. ZOPHREN [Concomitant]
     Indication: VOMITING
  13. PRIMPERAN (FRANCE) [Concomitant]
     Indication: NAUSEA
     Route: 065
     Dates: start: 20130817
  14. PRIMPERAN (FRANCE) [Concomitant]
     Indication: VOMITING
  15. FUNGIZONE [Concomitant]
     Route: 065
     Dates: start: 20130816, end: 20130822
  16. SOLU-MEDROL [Concomitant]
     Indication: NAUSEA
     Route: 065
     Dates: start: 20130816
  17. SOLU-MEDROL [Concomitant]
     Indication: VOMITING
  18. BI-PROFENID [Concomitant]
     Indication: METASTATIC PAIN
     Route: 065
     Dates: start: 20130708, end: 20130724
  19. PARACETAMOL [Concomitant]
     Indication: METASTATIC PAIN
     Route: 065
     Dates: start: 20130806
  20. LASILIX [Concomitant]
     Route: 065
     Dates: start: 20131017, end: 20131019
  21. LASILIX [Concomitant]
     Route: 065
     Dates: start: 20131022, end: 20131025
  22. ALDACTONE (FRANCE) [Concomitant]
     Route: 065
     Dates: start: 20131020, end: 20131021
  23. LOVENOX [Concomitant]
     Indication: THROMBOSIS
     Dosage: 4000 UI
     Route: 065
     Dates: start: 20131013, end: 20131025

REACTIONS (1)
  - Lung disorder [Recovered/Resolved]
